FAERS Safety Report 17859124 (Version 1)
Quarter: 2020Q2

REPORT INFORMATION
  Report Type: Spontaneous
  Country: HU (occurrence: HU)
  Receive Date: 20200604
  Receipt Date: 20200604
  Transmission Date: 20200714
  Serious: Yes (Other)
  Sender: FDA-Public Use
  Company Number: HU-IPCA LABORATORIES LIMITED-IPC-2020-HU-001744

PATIENT

DRUGS (1)
  1. PROPRANOLOL [Suspect]
     Active Substance: PROPRANOLOL HYDROCHLORIDE
     Indication: TACHYCARDIA
     Dosage: UNK
     Route: 065

REACTIONS (2)
  - Somnambulism [Recovered/Resolved]
  - Ankle fracture [Unknown]
